FAERS Safety Report 11421440 (Version 6)
Quarter: 2015Q4

REPORT INFORMATION
  Report Type: Report from Study
  Country: US (occurrence: US)
  Receive Date: 20150826
  Receipt Date: 20151105
  Transmission Date: 20160304
  Serious: Yes (Death, Hospitalization, Other)
  Sender: FDA-Public Use
  Company Number: US-ABBVIE-15P-163-1451857-00

PATIENT
  Age: 50 Year
  Sex: Male
  Weight: 79 kg

DRUGS (10)
  1. RIBAVIRIN. [Suspect]
     Active Substance: RIBAVIRIN
     Indication: CHRONIC HEPATITIS C
     Dosage: 600MG IN THE MORNING; 400MG IN THE EVENING
     Route: 048
     Dates: start: 20150607, end: 20150827
  2. CARVEDILOL. [Concomitant]
     Active Substance: CARVEDILOL
     Indication: PRODUCT USED FOR UNKNOWN INDICATION
  3. VIEKIRA PAK [Suspect]
     Active Substance: DASABUVIR\OMBITASVIR\PARITAPREVIR\RITONAVIR
     Indication: HEPATIC CIRRHOSIS
  4. XIFAXAN [Concomitant]
     Active Substance: RIFAXIMIN
     Indication: HEPATIC FAILURE
  5. VIEKIRA PAK [Suspect]
     Active Substance: DASABUVIR\OMBITASVIR\PARITAPREVIR\RITONAVIR
     Indication: CHRONIC HEPATITIS C
     Dosage: 3 TABLETS IN AM, AND 1 TABLET IN PM
     Route: 048
     Dates: start: 20150607, end: 20150829
  6. FUROSEMIDE. [Concomitant]
     Active Substance: FUROSEMIDE
     Indication: PRODUCT USED FOR UNKNOWN INDICATION
  7. SPIRONOLACTONE. [Concomitant]
     Active Substance: SPIRONOLACTONE
     Indication: PRODUCT USED FOR UNKNOWN INDICATION
  8. LYRICA [Concomitant]
     Active Substance: PREGABALIN
     Indication: PRODUCT USED FOR UNKNOWN INDICATION
  9. NEXIUM [Concomitant]
     Active Substance: ESOMEPRAZOLE MAGNESIUM
     Indication: PRODUCT USED FOR UNKNOWN INDICATION
  10. FOLIC ACID. [Concomitant]
     Active Substance: FOLIC ACID
     Indication: PRODUCT USED FOR UNKNOWN INDICATION

REACTIONS (25)
  - Cholecystitis [Unknown]
  - Hypersomnia [Not Recovered/Not Resolved]
  - Prostatitis [Unknown]
  - Chest pain [Unknown]
  - Endotracheal intubation complication [Unknown]
  - Ascites [Unknown]
  - Epistaxis [Unknown]
  - Breath sounds abnormal [Unknown]
  - Drug ineffective [Not Recovered/Not Resolved]
  - Anger [Unknown]
  - Chronic hepatic failure [Not Recovered/Not Resolved]
  - Portal hypertension [Unknown]
  - Blood bilirubin increased [Unknown]
  - Fatigue [Not Recovered/Not Resolved]
  - Anaemia [Unknown]
  - Cerebral haemorrhage [Fatal]
  - Oedema peripheral [Unknown]
  - Hypotension [Unknown]
  - Amnesia [Not Recovered/Not Resolved]
  - Oedema [Unknown]
  - Skin discolouration [Not Recovered/Not Resolved]
  - Pruritus [Recovered/Resolved]
  - Hepatorenal syndrome [Unknown]
  - Renal disorder [Unknown]
  - Feeling cold [Not Recovered/Not Resolved]

NARRATIVE: CASE EVENT DATE: 2015
